FAERS Safety Report 8483657-8 (Version None)
Quarter: 2012Q3

REPORT INFORMATION
  Report Type: 
  Country: None (occurrence: None)
  Receive Date: 20120702
  Receipt Date: 20120626
  Transmission Date: 20120928
  Serious: Yes (Death, Hospitalization)
  Sender: FDA-Public Use
  Company Number: US-BRISTOL-MYERS SQUIBB COMPANY-15747744

PATIENT
  Age: 34 Year
  Sex: Female

DRUGS (11)
  1. IPILIMUMAB [Suspect]
     Indication: MALIGNANT MELANOMA
     Route: 042
     Dates: start: 20110324
  2. DILANTIN [Concomitant]
     Dosage: 1 DF-300 UNITS NOS
  3. METOPROLOL [Concomitant]
  4. KEPPRA [Concomitant]
  5. XANAX [Concomitant]
  6. MARINOL [Concomitant]
  7. BENADRYL [Concomitant]
     Dates: start: 20110512
  8. DECADRON [Concomitant]
  9. INAPSINE [Concomitant]
     Dates: start: 20110512
  10. ZOFRAN [Concomitant]
  11. COMPAZINE [Concomitant]

REACTIONS (3)
  - CONVULSION [None]
  - NEOPLASM MALIGNANT [None]
  - VOMITING [None]
